FAERS Safety Report 8499717-1 (Version None)
Quarter: 2012Q3

REPORT INFORMATION
  Report Type: 
  Country: None (occurrence: None)
  Receive Date: 20120710
  Receipt Date: 20120628
  Transmission Date: 20120928
  Serious: Yes (Hospitalization)
  Sender: FDA-Public Use
  Company Number: JP-VERTEX PHARMACEUTICALS INC.-AE-2012-009797

PATIENT
  Age: 55 Year
  Sex: Female

DRUGS (10)
  1. TELAVIC (TELAPREVIR) [Suspect]
     Indication: HEPATITIS C
     Route: 048
     Dates: start: 20120611, end: 20120615
  2. NEXIUM [Concomitant]
     Route: 048
  3. MUCOSTA [Concomitant]
     Route: 048
  4. NEUMETHYCOLE [Concomitant]
     Route: 048
  5. TELAVIC (TELAPREVIR) [Suspect]
     Route: 048
     Dates: start: 20120616, end: 20120624
  6. PEG-INTRON [Concomitant]
     Indication: HEPATITIS C
     Route: 058
     Dates: start: 20120611, end: 20120624
  7. REBETOL [Concomitant]
     Indication: HEPATITIS C
     Route: 048
     Dates: start: 20120611, end: 20120624
  8. CANDESARTAN CILEXETIL [Concomitant]
     Route: 048
     Dates: start: 20120626
  9. CELEBREX [Concomitant]
     Route: 048
     Dates: end: 20120615
  10. EPLERENONE [Concomitant]
     Route: 048
     Dates: start: 20120626

REACTIONS (2)
  - BLOOD CREATININE INCREASED [None]
  - VOMITING [None]
